FAERS Safety Report 6733923-9 (Version None)
Quarter: 2010Q2

REPORT INFORMATION
  Report Type: 
  Country: None (occurrence: None)
  Receive Date: 20100520
  Receipt Date: 20100510
  Transmission Date: 20101027
  Serious: Yes (Other)
  Sender: FDA-Public Use
  Company Number: US-ROCHE-703832

PATIENT
  Sex: Male
  Weight: 64.4 kg

DRUGS (1)
  1. BONIVA [Suspect]
     Indication: OSTEOPOROSIS
     Dosage: INDICATION REPORTED AS: OSTEOPOROSIS 2006 BROKE HIP
     Route: 048
     Dates: start: 20080101

REACTIONS (2)
  - DEAFNESS [None]
  - VIRAL INFECTION [None]
